FAERS Safety Report 15570878 (Version 1)
Quarter: 2018Q4

REPORT INFORMATION
  Report Type: Spontaneous
  Country: JP (occurrence: JP)
  Receive Date: 20181031
  Receipt Date: 20181031
  Transmission Date: 20190205
  Serious: Yes (Other)
  Sender: FDA-Public Use
  Company Number: JP-PFIZER INC-2018434293

PATIENT
  Age: 89 Year
  Sex: Female

DRUGS (7)
  1. FOLIAMIN [Concomitant]
     Active Substance: FOLIC ACID
     Dosage: 5 MG, DAILY
     Route: 048
  2. EDIROL [Concomitant]
     Active Substance: ELDECALCITOL
  3. HUMIRA [Concomitant]
     Active Substance: ADALIMUMAB
  4. RHEUMATREX [Suspect]
     Active Substance: METHOTREXATE SODIUM
     Indication: RHEUMATOID ARTHRITIS
     Dosage: UNK
     Route: 048
  5. AZULFIDINE [Concomitant]
     Active Substance: SULFASALAZINE
     Route: 048
  6. BONOTEO [Concomitant]
     Active Substance: MINODRONIC ACID
  7. RHEUMATREX [Suspect]
     Active Substance: METHOTREXATE SODIUM
     Dosage: 6 MG, WEEKLY
     Route: 048
     Dates: start: 201809, end: 20181010

REACTIONS (5)
  - Bone disorder [Unknown]
  - Pyrexia [Unknown]
  - Pain [Unknown]
  - Herpes zoster [Unknown]
  - C-reactive protein increased [Unknown]

NARRATIVE: CASE EVENT DATE: 201805
